FAERS Safety Report 4763543-7 (Version None)
Quarter: 2005Q3

REPORT INFORMATION
  Report Type: 
  Country: None (occurrence: None)
  Receive Date: 20050908
  Receipt Date: 20050830
  Transmission Date: 20060218
  Serious: Yes (Life-Threatening, Hospitalization)
  Sender: FDA-Public Use
  Company Number: GB-BRISTOL-MYERS SQUIBB COMPANY-13098751

PATIENT
  Age: 86 Year
  Sex: Female

DRUGS (10)
  1. METFORMIN HCL [Suspect]
     Indication: DIABETES MELLITUS NON-INSULIN-DEPENDENT
     Route: 048
  2. ENALAPRIL [Suspect]
  3. TRAMADOL HCL [Suspect]
     Dates: start: 20050721
  4. BENDROFLUAZIDE [Suspect]
  5. ASPIRIN [Concomitant]
  6. CO-PROXAMOL [Concomitant]
     Dates: end: 20050721
  7. SIMVASTATIN [Concomitant]
  8. QUININE SULFATE [Concomitant]
  9. PARACETAMOL [Concomitant]
     Dates: start: 20050722, end: 20050801
  10. FYBOGEL [Concomitant]

REACTIONS (3)
  - DIARRHOEA [None]
  - RENAL FAILURE [None]
  - VOMITING [None]
